FAERS Safety Report 23681490 (Version 2)
Quarter: 2024Q2

REPORT INFORMATION
  Report Type: Spontaneous
  Country: US (occurrence: US)
  Receive Date: 20240328
  Receipt Date: 20240402
  Transmission Date: 20240715
  Serious: Yes (Other)
  Sender: FDA-Public Use
  Company Number: US-002147023-NVSC2024US066059

PATIENT

DRUGS (1)
  1. KESIMPTA [Suspect]
     Active Substance: OFATUMUMAB
     Indication: Product used for unknown indication
     Dosage: UNK
     Route: 065

REACTIONS (9)
  - Renal disorder [Unknown]
  - Bacteriuria [Unknown]
  - Dysuria [Recovered/Resolved]
  - Respiratory tract infection [Unknown]
  - White blood cells urine positive [Unknown]
  - White blood cell disorder [Unknown]
  - Blood urine present [Unknown]
  - Urinary tract infection [Unknown]
  - Vomiting [Unknown]
